FAERS Safety Report 13176695 (Version 1)
Quarter: 2017Q1

REPORT INFORMATION
  Report Type: Report from Study
  Country: CA (occurrence: CA)
  Receive Date: 20170201
  Receipt Date: 20170201
  Transmission Date: 20170428
  Serious: Yes (Hospitalization)
  Sender: FDA-Public Use
  Company Number: CA-PRAGMA PHARMACEUTICALS, LLC-2017PRG00008

PATIENT
  Age: 79 Year
  Sex: Female
  Weight: 69.7 kg

DRUGS (4)
  1. KEFLEX [Suspect]
     Active Substance: CEPHALEXIN
     Indication: GROIN INFECTION
     Dosage: UNK
     Dates: start: 20160624
  2. VITAMIN D [Suspect]
     Active Substance: CHOLECALCIFEROL
     Dosage: UNK
     Dates: start: 2014
  3. KEFLEX [Suspect]
     Active Substance: CEPHALEXIN
     Indication: INGUINAL MASS
  4. EXJADE [Suspect]
     Active Substance: DEFERASIROX
     Indication: IRON OVERLOAD
     Dosage: UNK
     Route: 048
     Dates: start: 2014

REACTIONS (1)
  - Sinus bradycardia [Recovered/Resolved]

NARRATIVE: CASE EVENT DATE: 20160719
